FAERS Safety Report 12844258 (Version 1)
Quarter: 2016Q4

REPORT INFORMATION
  Report Type: Spontaneous
  Country: US (occurrence: US)
  Receive Date: 20161013
  Receipt Date: 20161013
  Transmission Date: 20170207
  Serious: No
  Sender: FDA-Public Use
  Company Number: US-ROCHE-1773310

PATIENT
  Sex: Male

DRUGS (2)
  1. ZELBORAF [Suspect]
     Active Substance: VEMURAFENIB
     Indication: MALIGNANT MELANOMA
     Dosage: 960
     Route: 048
     Dates: start: 20160219, end: 20160318
  2. COTELLIC [Suspect]
     Active Substance: COBIMETINIB
     Indication: MALIGNANT MELANOMA
     Dosage: 21 DAYS ON, 7 DAYS OFF
     Route: 048
     Dates: start: 20160219, end: 20160318

REACTIONS (1)
  - Rash [Recovered/Resolved]
